FAERS Safety Report 8666889 (Version 4)
Quarter: 2012Q4

REPORT INFORMATION
  Report Type: 
  Country: JP (occurrence: JP)
  Receive Date: 20120716
  Receipt Date: 20120911
  Transmission Date: 20130627
  Serious: Yes (Hospitalization)
  Sender: FDA-Public Use
  Company Number: JP-TEVA-330995ISR

PATIENT
  Age: 61 Year
  Sex: Female
  Weight: 60 kg

DRUGS (7)
  1. CALBLOCK [Suspect]
     Indication: HYPERTENSION
     Dosage: 8 Milligram Daily;
     Route: 048
     Dates: start: 20111109
  2. BLOPRESS [Suspect]
     Indication: HYPERTENSION
     Dosage: 4 Milligram Daily;
     Route: 048
     Dates: start: 20111115, end: 20120312
  3. MAGMITT TAB 330MG [Concomitant]
     Indication: CONSTIPATION
     Dosage: 990 Milligram Daily;
     Route: 048
     Dates: start: 20111208
  4. ASPARA K POWDER 50% [Concomitant]
     Indication: HYPOKALAEMIA
     Dosage: 4 Gram Daily;
     Route: 048
     Dates: start: 20120120
  5. SERMION [Concomitant]
     Indication: ABULIA
     Dosage: 15 Milligram Daily;
     Route: 048
     Dates: end: 20120222
  6. AMAZOLON [Concomitant]
     Indication: ABULIA
     Dosage: 1 Gram Daily;
     Route: 048
     Dates: end: 20120222
  7. FUROSEMIDE [Suspect]
     Indication: HYPERTENSION
     Dosage: 20 Milligram Daily;
     Route: 048
     Dates: start: 20110920

REACTIONS (1)
  - Hepatic function abnormal [Recovering/Resolving]
